FAERS Safety Report 11771199 (Version 12)
Quarter: 2018Q1

REPORT INFORMATION
  Report Type: Report from Study
  Country: PL (occurrence: PL)
  Receive Date: 20151124
  Receipt Date: 20180119
  Transmission Date: 20180508
  Serious: Yes (Other)
  Sender: FDA-Public Use
  Company Number: PL-ROCHE-1662674

PATIENT

DRUGS (3)
  1. OMBITASVIR/PARITAPREVIR/RITONAVIR [Suspect]
     Active Substance: OMBITASVIR\PARITAPREVIR\RITONAVIR
     Indication: HEPATITIS C
     Dosage: FORM STRENGTH (12.5 MG/75 MG/ 50 MG), DOSE (25 MG/150 MG/100 MG/DAY)
     Route: 065
  2. DASABUVIR [Suspect]
     Active Substance: DASABUVIR
     Indication: HEPATITIS C
     Dosage: DIVIDED IN TWO DOSES
     Route: 065
  3. RIBAVIRIN. [Suspect]
     Active Substance: RIBAVIRIN
     Indication: HEPATITIS C
     Dosage: DOSE: 1000 MG/DAY IN PATIENTS WEIGHING {75 KG; 1200 MG/DAY IN PATIENTS WEIGHING }75 KG.
     Route: 065

REACTIONS (20)
  - Hepatotoxicity [Unknown]
  - Insomnia [Unknown]
  - Pain in extremity [Unknown]
  - Hepatocellular carcinoma [Unknown]
  - Nausea [Unknown]
  - Jaundice [Unknown]
  - Rash [Unknown]
  - Anaemia [Unknown]
  - Hyperbilirubinaemia [Unknown]
  - Fatigue [Unknown]
  - Alanine aminotransferase increased [Unknown]
  - Diarrhoea [Unknown]
  - Haemoglobin decreased [Unknown]
  - Renal failure [Unknown]
  - Hepatic failure [Unknown]
  - Headache [Unknown]
  - Pruritus [Unknown]
  - Asthenia [Unknown]
  - Oedema peripheral [Unknown]
  - Arthralgia [Unknown]
